FAERS Safety Report 9209757 (Version 3)
Quarter: 2013Q2

REPORT INFORMATION
  Report Type: Spontaneous
  Country: JP (occurrence: JP)
  Receive Date: 20130404
  Receipt Date: 20130429
  Transmission Date: 20140414
  Serious: Yes (Hospitalization, Other)
  Sender: FDA-Public Use
  Company Number: JP-PFIZER INC-2013104488

PATIENT
  Age: 73 Year
  Sex: Male
  Weight: 52 kg

DRUGS (4)
  1. LYRICA [Suspect]
     Indication: NECK PAIN
     Dosage: 25 MG, 2X/DAY
     Route: 048
     Dates: start: 20130322, end: 20130327
  2. LYRICA [Suspect]
     Indication: ARTHRALGIA
  3. METHYCOBAL [Concomitant]
     Dosage: UNK
     Route: 048
  4. BAYASPIRIN [Concomitant]
     Dosage: UNK
     Route: 048

REACTIONS (7)
  - Liver disorder [Recovering/Resolving]
  - White blood cell count increased [Unknown]
  - C-reactive protein increased [Unknown]
  - Pyrexia [Recovering/Resolving]
  - Anaemia [Unknown]
  - Off label use [Unknown]
  - Oedema [Recovering/Resolving]
